FAERS Safety Report 16463090 (Version 1)
Quarter: 2019Q2

REPORT INFORMATION
  Report Type: Spontaneous
  Country: US (occurrence: US)
  Receive Date: 20190621
  Receipt Date: 20190621
  Transmission Date: 20190711
  Serious: No
  Sender: FDA-Public Use
  Company Number: US-AMGEN INC.-USASP2019098277

PATIENT
  Sex: Female

DRUGS (1)
  1. AIMOVIG [Suspect]
     Active Substance: ERENUMAB-AOOE
     Indication: PRODUCT USED FOR UNKNOWN INDICATION
     Dosage: UNK
     Route: 065
     Dates: start: 201811

REACTIONS (6)
  - Influenza [Unknown]
  - Muscle spasms [Unknown]
  - Dysphonia [Unknown]
  - Myalgia [Unknown]
  - Constipation [Unknown]
  - Sluggishness [Unknown]

NARRATIVE: CASE EVENT DATE: 201811
